FAERS Safety Report 5767179-0 (Version None)
Quarter: 2008Q2

REPORT INFORMATION
  Report Type: 
  Country: None (occurrence: None)
  Receive Date: 20080611
  Receipt Date: 20080606
  Transmission Date: 20081010
  Serious: Yes (Death)
  Sender: FDA-Public Use
  Company Number: APP200800481

PATIENT
  Age: 77 Year
  Sex: Female
  Weight: 49.8957 kg

DRUGS (1)
  1. HEPARIN SODIUM INJECTION [Suspect]
     Indication: THROMBOSIS PROPHYLAXIS
     Dosage: FOR HEMODIALYSIS, INTRAVENOUS
     Route: 042
     Dates: start: 20020101

REACTIONS (10)
  - ABDOMINAL PAIN [None]
  - BURNING SENSATION [None]
  - DYSPNOEA [None]
  - FEELING COLD [None]
  - HYPERHIDROSIS [None]
  - LOSS OF CONSCIOUSNESS [None]
  - SEPTIC SHOCK [None]
  - SHUNT MALFUNCTION [None]
  - SWELLING [None]
  - TACHYCARDIA [None]
